FAERS Safety Report 9184173 (Version 1)
Quarter: 2013Q1

REPORT INFORMATION
  Report Type: Spontaneous
  Country: IL (occurrence: IL)
  Receive Date: 20130322
  Receipt Date: 20130322
  Transmission Date: 20140127
  Serious: Yes (Hospitalization, Other)
  Sender: FDA-Public Use
  Company Number: IL-BAYER-2013-035154

PATIENT
  Age: 52 Year
  Sex: Male

DRUGS (9)
  1. ACETYLSALICYLIC ACID({=100 MG) [Suspect]
     Indication: ANGINA UNSTABLE
  2. CLOPIDOGREL [Interacting]
     Indication: ANGINA UNSTABLE
  3. CLOPIDOGREL [Interacting]
     Indication: ANGINA UNSTABLE
     Dosage: DAILY DOSE 75 MG
  4. FACTOR VIII [Concomitant]
     Indication: FACTOR VIII DEFICIENCY
     Dosage: UNK, OW
  5. FACTOR VIII [Concomitant]
     Indication: FACTOR VIII DEFICIENCY
     Dosage: 2000 U, UNK
  6. FACTOR VIII [Concomitant]
     Indication: FACTOR VIII DEFICIENCY
     Dosage: 1000 IU, BID
  7. FACTOR VIII [Concomitant]
     Indication: FACTOR VIII DEFICIENCY
     Dosage: 2000 IU, UNK
  8. UNFRACTIONATED HEPARIN [Concomitant]
     Indication: ANTICOAGULANT THERAPY
  9. ANTITHROMBOTIC AGENTS [Concomitant]
     Indication: CORONARY ARTERY EMBOLISM
     Route: 042

REACTIONS (3)
  - Coronary artery restenosis [None]
  - Haemorrhage [None]
  - Labelled drug-drug interaction medication error [None]
